FAERS Safety Report 9966564 (Version 2)
Quarter: 2014Q1

REPORT INFORMATION
  Report Type: Spontaneous
  Country: PR (occurrence: PR)
  Receive Date: 20140305
  Receipt Date: 20140305
  Transmission Date: 20141002
  Serious: No
  Sender: FDA-Public Use
  Company Number: PR-ABBVIE-13P-131-1099260-00

PATIENT
  Age: 53 Year
  Sex: Female
  Weight: 134.38 kg

DRUGS (17)
  1. HUMIRA [Suspect]
     Indication: PSORIATIC ARTHROPATHY
     Route: 058
     Dates: start: 20130601
  2. HUMIRA [Suspect]
     Route: 058
     Dates: start: 201306
  3. SYNTHROID [Concomitant]
     Indication: HYPOTHYROIDISM
     Route: 048
  4. PREVACID [Concomitant]
     Indication: GASTRITIS
     Route: 048
  5. CYMBALTA [Concomitant]
     Route: 048
  6. ATIVAN [Concomitant]
     Indication: MAJOR DEPRESSION
     Route: 048
  7. ABILIFY [Concomitant]
     Indication: PSYCHOTIC DISORDER
     Route: 048
  8. TRENTAL [Concomitant]
     Indication: PRODUCT USED FOR UNKNOWN INDICATION
     Route: 048
  9. METHOTREXATE [Concomitant]
     Indication: PSORIATIC ARTHROPATHY
     Route: 048
  10. VITAMIN D2 [Concomitant]
     Indication: VITAMIN SUPPLEMENTATION
     Route: 048
  11. FOLIC ACID [Concomitant]
     Indication: VITAMIN SUPPLEMENTATION
     Route: 048
  12. NEURONTIN [Concomitant]
     Indication: PAIN
     Route: 048
  13. ATIVAN [Concomitant]
     Indication: MAJOR DEPRESSION
     Route: 048
  14. RESTORIL [Concomitant]
     Indication: MAJOR DEPRESSION
  15. TRAZODONE [Concomitant]
     Indication: MAJOR DEPRESSION
     Route: 048
  16. BONIVA [Concomitant]
     Indication: OSTEOPENIA
     Route: 048
  17. PERCOCET [Concomitant]
     Indication: PAIN
     Route: 048

REACTIONS (1)
  - Nasopharyngitis [Recovered/Resolved]
